FAERS Safety Report 5179275-X (Version None)
Quarter: 2006Q4

REPORT INFORMATION
  Report Type: 
  Country: None (occurrence: None)
  Receive Date: 20061219
  Receipt Date: 20061211
  Transmission Date: 20070319
  Serious: Yes (Hospitalization)
  Sender: FDA-Public Use
  Company Number: CH-JNJFOC-20061202693

PATIENT
  Age: 84 Year
  Sex: Female

DRUGS (6)
  1. DURAGESIC-100 [Suspect]
     Indication: DRUG USE FOR UNKNOWN INDICATION
     Route: 062
  2. TENORETIC 100 [Suspect]
     Indication: ESSENTIAL HYPERTENSION
     Route: 048
  3. ASPIRIN [Concomitant]
     Route: 048
  4. SELIPRAN [Concomitant]
     Route: 048
  5. ZOLPIDEM TARTRATE [Concomitant]
     Route: 048
  6. TRAMADOL HCL [Concomitant]
     Route: 048

REACTIONS (3)
  - BLOOD POTASSIUM DECREASED [None]
  - BLOOD SODIUM DECREASED [None]
  - VOMITING [None]
